FAERS Safety Report 19450983 (Version 2)
Quarter: 2021Q3

REPORT INFORMATION
  Report Type: Spontaneous
  Country: US (occurrence: US)
  Receive Date: 20210622
  Receipt Date: 20210730
  Transmission Date: 20211014
  Serious: Yes (Death)
  Sender: FDA-Public Use
  Company Number: US-ASTRAZENECA-2021A539755

PATIENT

DRUGS (2)
  1. ABEMACICLIB [Concomitant]
     Active Substance: ABEMACICLIB
  2. FASLODEX [Suspect]
     Active Substance: FULVESTRANT
     Route: 030

REACTIONS (1)
  - Aortic stenosis [Fatal]
